FAERS Safety Report 4346766-0 (Version None)
Quarter: 2004Q1

REPORT INFORMATION
  Report Type: 
  Country: None (occurrence: None)
  Receive Date: 20040325
  Receipt Date: 20031219
  Transmission Date: 20041129
  Serious: No
  Sender: FDA-Public Use
  Company Number: USA031255193

PATIENT
  Age: 61 Year
  Sex: Female
  Weight: 54 kg

DRUGS (3)
  1. FORTEO [Suspect]
     Dates: start: 20031203
  2. ADVAIR DISKUS 100/50 [Concomitant]
  3. SINGULAR (MONTELUKAST SODIUM) [Concomitant]

REACTIONS (6)
  - ASTHENIA [None]
  - GINGIVAL BLEEDING [None]
  - GINGIVAL DISORDER [None]
  - GINGIVAL PAIN [None]
  - GINGIVITIS [None]
  - LIP BLISTER [None]
